FAERS Safety Report 8440477-8 (Version None)
Quarter: 2012Q2

REPORT INFORMATION
  Report Type: 
  Country: None (occurrence: None)
  Receive Date: 20120615
  Receipt Date: 20120615
  Transmission Date: 20120825
  Serious: Yes (Hospitalization)
  Sender: FDA-Public Use
  Company Number: JP-GLAXOSMITHKLINE-B0570700A

PATIENT
  Sex: Female

DRUGS (7)
  1. RISPERDAL [Concomitant]
     Indication: HYPERKINESIA
     Dosage: .5MG PER DAY
     Route: 048
  2. DEPAKENE [Concomitant]
     Dosage: 100MG PER DAY
     Route: 048
  3. CLOBAZAM [Concomitant]
     Indication: EPILEPSY
     Route: 048
  4. TOPIRAMATE [Concomitant]
     Indication: EPILEPSY
     Dosage: 300MG PER DAY
     Route: 048
  5. DEPAKENE [Concomitant]
     Indication: EPILEPSY
     Dosage: 1600MG PER DAY
     Route: 048
  6. MYSTAN [Concomitant]
     Indication: EPILEPSY
     Route: 048
  7. LAMICTAL [Suspect]
     Indication: EPILEPSY
     Route: 048
     Dates: start: 20090226, end: 20090408

REACTIONS (36)
  - GAMMA-GLUTAMYLTRANSFERASE INCREASED [None]
  - LYMPHADENOPATHY [None]
  - HEPATIC FUNCTION ABNORMAL [None]
  - RASH [None]
  - PAPULE [None]
  - HYPERTHYROIDISM [None]
  - DRUG ERUPTION [None]
  - RESPIRATORY RATE INCREASED [None]
  - LIP INJURY [None]
  - EPSTEIN-BARR VIRUS TEST POSITIVE [None]
  - BLOOD THYROID STIMULATING HORMONE INCREASED [None]
  - ASPARTATE AMINOTRANSFERASE INCREASED [None]
  - LYMPHOCYTE COUNT INCREASED [None]
  - DRUG RASH WITH EOSINOPHILIA AND SYSTEMIC SYMPTOMS [None]
  - JAUNDICE [None]
  - DISSEMINATED INTRAVASCULAR COAGULATION [None]
  - THYROXINE FREE INCREASED [None]
  - MALAISE [None]
  - BLOOD LACTATE DEHYDROGENASE INCREASED [None]
  - WHITE BLOOD CELL COUNT INCREASED [None]
  - ERYTHEMA [None]
  - HEART RATE INCREASED [None]
  - BLOOD IMMUNOGLOBULIN G DECREASED [None]
  - CYTOMEGALOVIRUS TEST POSITIVE [None]
  - PYREXIA [None]
  - HUMAN HERPESVIRUS 6 INFECTION [None]
  - INFLAMMATION [None]
  - ALANINE AMINOTRANSFERASE INCREASED [None]
  - BLOOD ALKALINE PHOSPHATASE INCREASED [None]
  - TREMOR [None]
  - HYPERTHERMIA [None]
  - OEDEMA [None]
  - C-REACTIVE PROTEIN INCREASED [None]
  - EOSINOPHIL COUNT DECREASED [None]
  - PIGMENTATION DISORDER [None]
  - TRI-IODOTHYRONINE FREE INCREASED [None]
